FAERS Safety Report 7576370-2 (Version None)
Quarter: 2011Q2

REPORT INFORMATION
  Report Type: 
  Country: None (occurrence: None)
  Receive Date: 20110628
  Receipt Date: 20110608
  Transmission Date: 20111010
  Serious: Yes (Other)
  Sender: FDA-Public Use
  Company Number: US-BAYER-200840204NA

PATIENT
  Age: 73 Year
  Sex: Male
  Weight: 113 kg

DRUGS (20)
  1. TRASYLOL [Suspect]
     Dosage: 200ML
     Route: 042
     Dates: start: 20031014, end: 20031014
  2. LASIX [Concomitant]
     Dosage: 40 MG,LONG TERM
     Route: 048
  3. INDERAL [Concomitant]
     Dosage: 80 MG, UNK
     Route: 048
  4. AMIODARONE HCL [Concomitant]
     Dosage: 200 MG, UNK
     Route: 048
  5. RED BLOOD CELLS [Concomitant]
     Dosage: 7 U, UNK
     Route: 042
  6. PROTAMINE SULFATE [Concomitant]
     Dosage: 400 MG, UNK
     Route: 042
     Dates: start: 20031014, end: 20031014
  7. ALLOPURINOL [Concomitant]
     Dosage: 300 MG, UNK
     Route: 048
  8. HYDRALAZINE HCL [Concomitant]
     Dosage: 25 MG, UNK
     Route: 048
  9. HEPARIN [Concomitant]
     Dosage: UNK
     Route: 042
     Dates: start: 20031014, end: 20031014
  10. TRIDIL [Concomitant]
     Dosage: UNK
     Route: 042
     Dates: start: 20031014, end: 20031014
  11. ANCEF [Concomitant]
     Dosage: 1.5 G, UNK
     Route: 042
     Dates: start: 20031014
  12. TRASYLOL [Suspect]
     Dosage: 1 ML
     Route: 042
     Dates: start: 20031014, end: 20031014
  13. TRASYLOL [Suspect]
     Dosage: 50ML/HR
     Route: 042
     Dates: start: 20031014, end: 20031014
  14. MILRINONE [Concomitant]
     Dosage: UNK
     Route: 042
     Dates: start: 20031014, end: 20031014
  15. VERSED [Concomitant]
     Dosage: 7 MG, UNK
     Route: 042
     Dates: start: 20031014, end: 20031014
  16. FENTANYL [Concomitant]
     Dosage: UNK
     Route: 042
     Dates: start: 20031014
  17. SULINDAC [Concomitant]
     Dosage: 150 MG, UNK
     Route: 048
  18. DOPAMINE HCL [Concomitant]
     Dosage: UNK
     Route: 042
     Dates: start: 20031014, end: 20031014
  19. SOLU-MEDROL [Concomitant]
     Dosage: 25 MG, UNK
     Route: 042
     Dates: start: 20031014, end: 20031014
  20. ACCUPRIL [Concomitant]
     Dosage: 20 MG, UNK
     Route: 048

REACTIONS (12)
  - PAIN [None]
  - EMOTIONAL DISTRESS [None]
  - TOE AMPUTATION [None]
  - INJURY [None]
  - RENAL IMPAIRMENT [None]
  - STRESS [None]
  - UNEVALUABLE EVENT [None]
  - RENAL INJURY [None]
  - ANXIETY [None]
  - FEAR [None]
  - ANHEDONIA [None]
  - RENAL FAILURE [None]
